FAERS Safety Report 23528403 (Version 1)
Quarter: 2024Q1

REPORT INFORMATION
  Report Type: Spontaneous
  Country: CA (occurrence: CA)
  Receive Date: 20240215
  Receipt Date: 20240215
  Transmission Date: 20240410
  Serious: Yes (Death)
  Sender: FDA-Public Use
  Company Number: CA-HLS-202400275

PATIENT
  Age: 55 Year
  Sex: Female

DRUGS (1)
  1. CLOZAPINE [Suspect]
     Active Substance: CLOZAPINE
     Indication: Product used for unknown indication
     Dosage: 1 EVERY 1 DAYS?AMOUNT: 150 MILLIGRAM?TABLETS DOSAGE FORM
     Route: 065

REACTIONS (1)
  - Cardiac disorder [Fatal]
